FAERS Safety Report 13033820 (Version 1)
Quarter: 2016Q4

REPORT INFORMATION
  Report Type: Spontaneous
  Country: US (occurrence: US)
  Receive Date: 20161215
  Receipt Date: 20161215
  Transmission Date: 20170207
  Serious: No
  Sender: FDA-Public Use
  Company Number: None

PATIENT
  Sex: Female

DRUGS (1)
  1. FORTEO [Suspect]
     Active Substance: TERIPARATIDE
     Route: 058
     Dates: start: 20161010, end: 20161206

REACTIONS (5)
  - Dizziness [None]
  - Headache [None]
  - Heart rate increased [None]
  - Visual impairment [None]
  - Chest discomfort [None]
